FAERS Safety Report 13457710 (Version 1)
Quarter: 2017Q2

REPORT INFORMATION
  Report Type: Spontaneous
  Country: IT (occurrence: IT)
  Receive Date: 20170419
  Receipt Date: 20170419
  Transmission Date: 20170830
  Serious: Yes (Hospitalization, Other)
  Sender: FDA-Public Use
  Company Number: IT-CIPLA LTD.-2017IT06893

PATIENT

DRUGS (2)
  1. LAMOTRIGINE. [Suspect]
     Active Substance: LAMOTRIGINE
     Dosage: UNK
     Route: 065
  2. DIAZEPAM. [Suspect]
     Active Substance: DIAZEPAM
     Indication: SEIZURE
     Dosage: UNK, TWICE
     Route: 054

REACTIONS (10)
  - Ataxia [Recovered/Resolved]
  - Overdose [Unknown]
  - Drug ineffective [Unknown]
  - Bundle branch block right [Unknown]
  - Hyperphagia [Not Recovered/Not Resolved]
  - Toxicity to various agents [Unknown]
  - Dystonia [Recovered/Resolved]
  - Oculogyric crisis [Recovered/Resolved]
  - Status epilepticus [Recovering/Resolving]
  - Drug level increased [Unknown]
